FAERS Safety Report 9765451 (Version 1)
Quarter: 2013Q4

REPORT INFORMATION
  Report Type: Spontaneous
  Country: US (occurrence: US)
  Receive Date: 20131217
  Receipt Date: 20131217
  Transmission Date: 20140711
  Serious: No
  Sender: FDA-Public Use
  Company Number: US-GLAXOSMITHKLINE-A1007383A

PATIENT
  Age: 60 Year
  Sex: Male

DRUGS (9)
  1. VOTRIENT [Suspect]
     Indication: MALIGNANT URINARY TRACT NEOPLASM
     Dosage: 400MG TWICE PER DAY
     Route: 048
     Dates: start: 20121126
  2. XELODA [Concomitant]
  3. ASPIRIN [Concomitant]
  4. NOVOLIN [Concomitant]
  5. SIMVASTATIN [Concomitant]
  6. AMLODIPINE [Concomitant]
  7. METOPROLOL [Concomitant]
  8. LISINOPRIL [Concomitant]
  9. CHOLECALCIFEROL [Concomitant]

REACTIONS (2)
  - Dry mouth [Not Recovered/Not Resolved]
  - Lip dry [Not Recovered/Not Resolved]
